FAERS Safety Report 5168270-2 (Version None)
Quarter: 2006Q4

REPORT INFORMATION
  Report Type: 
  Country: None (occurrence: None)
  Receive Date: 20061208
  Receipt Date: 20061204
  Transmission Date: 20070319
  Serious: Yes (Hospitalization, Other)
  Sender: FDA-Public Use
  Company Number: DE-BRISTOL-MYERS SQUIBB COMPANY-13601489

PATIENT
  Age: 6 Decade
  Sex: Male

DRUGS (3)
  1. ABILIFY [Suspect]
     Indication: PSYCHOTIC DISORDER
  2. TETRAHYDROCANNABINOL [Suspect]
     Dates: start: 20061124, end: 20061125
  3. METFORMIN HYDROCHLORIDE [Suspect]
     Dates: start: 20061124, end: 20061125

REACTIONS (5)
  - DRUG ABUSER [None]
  - ERYTHEMA [None]
  - INSOMNIA [None]
  - OVERDOSE [None]
  - PALPITATIONS [None]
